FAERS Safety Report 5084522-9 (Version None)
Quarter: 2006Q3

REPORT INFORMATION
  Report Type: 
  Country: None (occurrence: None)
  Receive Date: 20060818
  Receipt Date: 20060818
  Transmission Date: 20061208
  Serious: Yes (Other)
  Sender: FDA-Public Use
  Company Number: None

PATIENT
  Age: 33 Year
  Sex: Male
  Weight: 119.7496 kg

DRUGS (5)
  1. TYGACIL [Suspect]
     Indication: DIVERTICULITIS
     Dosage: 100MG ONCE IV
     Route: 042
     Dates: start: 20060709, end: 20060711
  2. LOVENOX [Concomitant]
  3. LEVAQUIN [Concomitant]
  4. REGLAN [Concomitant]
  5. PROTONIX [Concomitant]

REACTIONS (2)
  - LIVER FUNCTION TEST ABNORMAL [None]
  - NAUSEA [None]
